FAERS Safety Report 5123348-4 (Version None)
Quarter: 2006Q4

REPORT INFORMATION
  Report Type: 
  Country: None (occurrence: None)
  Receive Date: 20061005
  Receipt Date: 20060926
  Transmission Date: 20070319
  Serious: Yes (Other)
  Sender: FDA-Public Use
  Company Number: T200600997

PATIENT
  Sex: Female

DRUGS (1)
  1. OPTIJECT 350 (IOVERSOL)INJECTION, 350 [Suspect]
     Dosage: 125 ML, SINGLE, INTRAVENOUS
     Route: 042
     Dates: start: 20060825, end: 20060825

REACTIONS (3)
  - BLOOD PRESSURE INCREASED [None]
  - ERYTHEMA [None]
  - LOCALISED OEDEMA [None]
